FAERS Safety Report 16239443 (Version 1)
Quarter: 2019Q2

REPORT INFORMATION
  Report Type: Report from Study
  Country: CA (occurrence: CA)
  Receive Date: 20190425
  Receipt Date: 20190425
  Transmission Date: 20190711
  Serious: Yes (Other)
  Sender: FDA-Public Use
  Company Number: CA-MYLANLABS-2019M1019223

PATIENT
  Sex: Male
  Weight: 85 kg

DRUGS (2)
  1. CLOZAPINE. [Suspect]
     Active Substance: CLOZAPINE
     Indication: SCHIZOPHRENIA
     Dosage: 200 MILLIGRAM, HS
     Route: 048
     Dates: start: 20190124, end: 2019
  2. PALIPERIDONE. [Concomitant]
     Active Substance: PALIPERIDONE
     Indication: PRODUCT USED FOR UNKNOWN INDICATION
     Dosage: 150 MILLIGRAM, 3XW
     Route: 030

REACTIONS (2)
  - Small intestinal obstruction [Unknown]
  - Volvulus [Unknown]

NARRATIVE: CASE EVENT DATE: 2019
